FAERS Safety Report 18013741 (Version 1)
Quarter: 2020Q3

REPORT INFORMATION
  Report Type: Spontaneous
  Country: US (occurrence: US)
  Receive Date: 20200711
  Receipt Date: 20200711
  Transmission Date: 20201103
  Serious: Yes (Hospitalization)
  Sender: FDA-Public Use
  Company Number: None

PATIENT
  Age: 56 Year
  Sex: Female
  Weight: 93 kg

DRUGS (8)
  1. VITAMIN B [Concomitant]
     Active Substance: VITAMIN B
  2. CLARITIN [Concomitant]
     Active Substance: LORATADINE
  3. PRILOSEC [Suspect]
     Active Substance: OMEPRAZOLE MAGNESIUM
  4. CARVEDILOL. [Concomitant]
     Active Substance: CARVEDILOL
  5. ESCITALALOPRAM [Concomitant]
  6. CARBOPLATIN. [Suspect]
     Active Substance: CARBOPLATIN
     Dates: start: 20200616, end: 20200629
  7. COMPAZINE [Concomitant]
     Active Substance: PROCHLORPERAZINE MALEATE
  8. VITAMIN D3 [Suspect]
     Active Substance: CHOLECALCIFEROL

REACTIONS (4)
  - Abdominal pain upper [None]
  - Nausea [None]
  - Vomiting [None]
  - Intestinal obstruction [None]

NARRATIVE: CASE EVENT DATE: 20200616
